FAERS Safety Report 17734810 (Version 1)
Quarter: 2020Q2

REPORT INFORMATION
  Report Type: Spontaneous
  Country: SE (occurrence: SE)
  Receive Date: 20200501
  Receipt Date: 20200501
  Transmission Date: 20200714
  Serious: Yes (Hospitalization)
  Sender: FDA-Public Use
  Company Number: SE-TEVA-2020-SE-1228388

PATIENT
  Age: 75 Year
  Sex: Female

DRUGS (6)
  1. TROMBYL [Concomitant]
     Active Substance: ASPIRIN
     Dates: start: 20200211
  2. ROSUVASTATIN. [Concomitant]
     Active Substance: ROSUVASTATIN
     Dosage: 40 MG
     Dates: start: 201912, end: 20200331
  3. METOPROLOL. [Concomitant]
     Active Substance: METOPROLOL
     Dosage: STRENGTH 100MG
     Dates: start: 20200211
  4. EZETIMIBE. [Suspect]
     Active Substance: EZETIMIBE
     Indication: HYPERLIPIDAEMIA
     Dosage: 10 MG
     Route: 048
     Dates: start: 20200319, end: 20200330
  5. ENALAPRIL [Concomitant]
     Active Substance: ENALAPRIL
     Dates: start: 20200211, end: 20200331
  6. BRILIQUE [Concomitant]
     Active Substance: TICAGRELOR
     Dates: start: 20200211

REACTIONS (3)
  - Acute kidney injury [Recovered/Resolved]
  - Rhabdomyolysis [Recovered/Resolved]
  - Hepatic failure [Recovered/Resolved]

NARRATIVE: CASE EVENT DATE: 20200331
